FAERS Safety Report 6642035-4 (Version None)
Quarter: 2010Q1

REPORT INFORMATION
  Report Type: 
  Country: None (occurrence: None)
  Receive Date: 20100319
  Receipt Date: 20100311
  Transmission Date: 20100710
  Serious: Yes (Other)
  Sender: FDA-Public Use
  Company Number: US-BAXTER-2010BH006806

PATIENT
  Age: 2 Year
  Sex: Male

DRUGS (1)
  1. HEMOFIL M [Suspect]
     Indication: HAEMOPHILIA
     Route: 065

REACTIONS (2)
  - FACTOR VIII INHIBITION [None]
  - HAEMORRHAGE [None]
